FAERS Safety Report 9695075 (Version 5)
Quarter: 2014Q1

REPORT INFORMATION
  Report Type: Report from Study
  Country: IL (occurrence: IL)
  Receive Date: 20131119
  Receipt Date: 20140307
  Transmission Date: 20141002
  Serious: Yes (Hospitalization, Other)
  Sender: FDA-Public Use
  Company Number: PHHY2013IL057329

PATIENT
  Age: 65 Year
  Sex: Female
  Weight: 59 kg

DRUGS (3)
  1. TASIGNA [Suspect]
     Indication: CHRONIC MYELOID LEUKAEMIA
     Dosage: 300 MG IN MORNING AND 150 MG IN EVENING
     Route: 048
     Dates: start: 20120605
  2. TASIGNA [Suspect]
     Dosage: 300 MG, PER DAY
     Dates: start: 20140205
  3. ANTIHYPERTENSIVES [Concomitant]
     Indication: HYPERTENSION

REACTIONS (7)
  - Myocardial infarction [Recovering/Resolving]
  - Troponin increased [Recovering/Resolving]
  - Chest pain [Not Recovered/Not Resolved]
  - Pruritus generalised [Not Recovered/Not Resolved]
  - Blood pressure decreased [Not Recovered/Not Resolved]
  - Rash [Recovered/Resolved]
  - Oedema peripheral [Recovering/Resolving]
